FAERS Safety Report 8298410-8 (Version None)
Quarter: 2012Q2

REPORT INFORMATION
  Report Type: 
  Country: None (occurrence: None)
  Receive Date: 20120419
  Receipt Date: 20120410
  Transmission Date: 20120825
  Serious: Yes (Death)
  Sender: FDA-Public Use
  Company Number: FR-PFIZER INC-2012075376

PATIENT
  Age: 61 Year
  Sex: Male

DRUGS (29)
  1. ATARAX [Suspect]
     Dosage: 100 MG, 1X/DAY
     Route: 048
     Dates: start: 20101220, end: 20110729
  2. RISPERDAL CONSTA [Suspect]
     Indication: SCHIZOPHRENIA, PARANOID TYPE
     Dosage: 50 MG/2 ML
     Dates: start: 20100708, end: 20110722
  3. ESIDRIX [Suspect]
     Dosage: 12.5 MG, 1X/DAY
     Route: 048
     Dates: start: 20090113, end: 20110729
  4. LEVOTHYROXINE SODIUM [Concomitant]
     Dosage: UNK
     Dates: start: 20040101
  5. MODECATE ^SANOFI WINTHROP^ [Concomitant]
     Dosage: UNK
     Dates: start: 20060101
  6. RISPERIDONE [Concomitant]
     Dosage: 0.1 %, FROM 2MG TO 8MG/DAY
     Dates: start: 20100618, end: 20100729
  7. AMLODIPINE BESYLATE [Suspect]
     Dosage: 5 MG, 1X/DAY
     Dates: start: 20081230, end: 20110729
  8. ATACAND [Suspect]
     Dosage: 16 MG, 1X/DAY
     Route: 048
     Dates: start: 20090113, end: 20110729
  9. LOXAPINE HCL [Suspect]
     Dosage: UP TO 6 TABLETS OF 100 MG DAILY, AND 1 TABLET OF 50 MG LP IF NEEDED
     Route: 048
     Dates: start: 20090101
  10. TRIMEPRAZINE TARTRATE [Suspect]
     Dosage: 4% ORAL SOLUTION IN DROPS, 100 DROPS PER DAY
     Route: 048
     Dates: start: 20081220, end: 20110729
  11. SERC [Suspect]
     Dosage: 8 MG, 2X/DAY
     Route: 048
     Dates: start: 20110527, end: 20110729
  12. NORMACOL [Concomitant]
     Dosage: 1 DF, ALTERNATE DAY
     Dates: start: 20090101
  13. X-PREP [Concomitant]
     Dosage: UNK
     Dates: start: 20060101
  14. RISPERDAL CONSTA [Suspect]
     Dosage: 01% FROM 2 MG TO 8 MG DAILY
     Dates: start: 20100618, end: 20100729
  15. EDUCTYL [Concomitant]
     Dosage: 2 SUPPOSITORY DAILY
     Dates: start: 20090101
  16. X-PREP [Concomitant]
     Dosage: AS NEEDED
     Dates: start: 20090101
  17. LEPTICUR [Concomitant]
     Dosage: UNK
     Dates: start: 20080101
  18. RISPERDAL CONSTA [Suspect]
     Dosage: 01% FROM 2 MG TO 8 MG DAILY
     Dates: start: 20101227, end: 20110120
  19. LOXAPINE HCL [Suspect]
     Dosage: 150 MG DAILY
     Route: 048
     Dates: start: 20010301
  20. IMOVANE [Suspect]
     Dosage: 7.5 MG, 2X/DAY
     Route: 048
     Dates: start: 20041027, end: 20110729
  21. POLYETHYLENE GLYCOL [Concomitant]
     Dosage: 6 DF DAILY
     Dates: start: 20080101
  22. POLYETHYLENE GLYCOL [Concomitant]
     Dosage: UNK
     Dates: start: 20060101
  23. ATACAND [Suspect]
     Dosage: 8 MG, 1X/DAY
     Route: 048
     Dates: start: 20090102, end: 20090112
  24. CELESTAMINE TAB [Concomitant]
     Dosage: 3 DF DAILY
     Dates: start: 20100101
  25. HALDOL [Suspect]
     Dosage: 2 MG/ML, ORAL SOLUTION IN DROPS, UNSPECIFIED DOSAGE
     Route: 048
     Dates: start: 20041027, end: 20090716
  26. VASTAREL [Suspect]
     Dosage: 35 MG, 2X/DAY
     Route: 048
     Dates: start: 20110527, end: 20110729
  27. LANSOYL [Concomitant]
     Dosage: 3 DF DAILY
     Dates: start: 20090101
  28. SULFARLEM [Concomitant]
     Dosage: UNK
  29. RISPERIDONE [Concomitant]
     Dosage: 0.1 %, FROM 2MG TO 8MG/DAY
     Dates: start: 20101227, end: 20110120

REACTIONS (7)
  - CARDIAC ARREST [None]
  - MYOCARDIAL INFARCTION [None]
  - ELECTROCARDIOGRAM QT PROLONGED [None]
  - SINUS TACHYCARDIA [None]
  - LEFT VENTRICULAR HYPERTROPHY [None]
  - ASPIRATION [None]
  - BUNDLE BRANCH BLOCK RIGHT [None]
